FAERS Safety Report 18241759 (Version 1)
Quarter: 2020Q3

REPORT INFORMATION
  Report Type: Spontaneous
  Country: SE (occurrence: SE)
  Receive Date: 20200908
  Receipt Date: 20200908
  Transmission Date: 20201103
  Serious: Yes (Other)
  Sender: FDA-Public Use
  Company Number: SE-ACCORD-199778

PATIENT
  Age: 55 Year
  Sex: Female

DRUGS (3)
  1. AMLODIPINE [Suspect]
     Active Substance: AMLODIPINE BESYLATE
     Indication: HYPERTENSION
     Dates: start: 20190320, end: 20190326
  2. CANDESARTAN. [Concomitant]
     Active Substance: CANDESARTAN
  3. VOXRA [Concomitant]
     Active Substance: BUPROPION HYDROCHLORIDE
     Dates: start: 20190316

REACTIONS (1)
  - Cough [Unknown]

NARRATIVE: CASE EVENT DATE: 20190323
